FAERS Safety Report 9162152 (Version 1)
Quarter: 2013Q1

REPORT INFORMATION
  Report Type: Spontaneous
  Country: DE (occurrence: DE)
  Receive Date: 20130314
  Receipt Date: 20130314
  Transmission Date: 20140127
  Serious: Yes (Hospitalization, Other)
  Sender: FDA-Public Use
  Company Number: PHHY2012DE106423

PATIENT
  Age: 71 Year
  Sex: Female
  Weight: 88 kg

DRUGS (10)
  1. AFINITOR [Suspect]
     Indication: BREAST CANCER METASTATIC
     Dosage: 10 MG, PER DAY
     Route: 048
     Dates: start: 20120827, end: 20121115
  2. FEMARA [Suspect]
     Dosage: 2.5 MG PER DAY
     Dates: start: 200903, end: 201301
  3. L-THYROXIN [Concomitant]
  4. AMLODIPINE [Concomitant]
  5. PANTOZOL [Concomitant]
  6. CALCIUM D [Concomitant]
  7. TOREM [Concomitant]
  8. MCP [Concomitant]
  9. XELODA [Concomitant]
  10. APOVIT CALCIUM [Concomitant]

REACTIONS (5)
  - Diarrhoea [Unknown]
  - Bronchopneumonia [Recovering/Resolving]
  - Pneumonitis [Recovering/Resolving]
  - Breast cancer metastatic [Unknown]
  - Malignant neoplasm progression [Unknown]
